FAERS Safety Report 21935910 (Version 8)
Quarter: 2023Q2

REPORT INFORMATION
  Report Type: Report from Study
  Country: US (occurrence: None)
  Receive Date: 20230201
  Receipt Date: 20230403
  Transmission Date: 20230721
  Serious: Yes (Hospitalization)
  Sender: FDA-Public Use
  Company Number: US-Eisai Medical Research-EC-2023-132856

PATIENT
  Age: 75 Year
  Sex: Female
  Weight: 54.88 kg

DRUGS (22)
  1. LENVATINIB [Suspect]
     Active Substance: LENVATINIB
     Indication: Clear cell renal cell carcinoma
     Dosage: STARTING DOSE AT 20 MG, FLUCTUATED DOSAGE
     Route: 048
     Dates: start: 20220107, end: 20230116
  2. LENVATINIB [Suspect]
     Active Substance: LENVATINIB
     Route: 048
     Dates: start: 20230209
  3. PEMBROLIZUMAB [Suspect]
     Active Substance: PEMBROLIZUMAB
     Indication: Clear cell renal cell carcinoma
     Route: 041
     Dates: start: 20220107, end: 20221209
  4. PEMBROLIZUMAB [Suspect]
     Active Substance: PEMBROLIZUMAB
     Route: 041
     Dates: start: 20230303
  5. BELZUTIFAN [Suspect]
     Active Substance: BELZUTIFAN
     Indication: Clear cell renal cell carcinoma
     Dosage: STARTING DOSE AT 120 MG, FLUCTUATED DOSAGE
     Route: 048
     Dates: start: 20220107, end: 20230116
  6. SYNJARDY [Concomitant]
     Active Substance: EMPAGLIFLOZIN\METFORMIN HYDROCHLORIDE
     Dates: start: 202111
  7. OMEPRAZOLE [Concomitant]
     Active Substance: OMEPRAZOLE
     Dates: start: 202111
  8. ROSUVASTATIN [Concomitant]
     Active Substance: ROSUVASTATIN
     Dates: start: 201902
  9. FISH OIL [Concomitant]
     Active Substance: FISH OIL
     Dates: start: 202005
  10. COLACE [Concomitant]
     Active Substance: DOCUSATE SODIUM
     Dates: start: 201701
  11. POTASSIUM PHOSPHATE DIBASIC;POTASSIUM PHOSPHATE MONOBASIC;SODIUM PHOSP [Concomitant]
     Dates: start: 20220120
  12. LEVOTHYROXINE SODIUM [Concomitant]
     Active Substance: LEVOTHYROXINE SODIUM
     Dates: start: 20220120
  13. MIRALAX [Concomitant]
     Active Substance: POLYETHYLENE GLYCOL 3350
     Dates: start: 20220421
  14. PREPARATION H [PHENYLEPHRINE HYDROCHLORIDE;THEOBROMA CACAO OIL] [Concomitant]
     Dates: start: 20220407
  15. MEGACE [Concomitant]
     Active Substance: MEGESTROL ACETATE
     Dates: start: 20220628
  16. ACYCLOVIR [Concomitant]
     Active Substance: ACYCLOVIR
     Dates: start: 20220701
  17. CYANOCOBALAMIN [Concomitant]
     Active Substance: CYANOCOBALAMIN
     Route: 030
     Dates: start: 20220816
  18. ELIQUIS [Concomitant]
     Active Substance: APIXABAN
     Dates: start: 20220120
  19. DILTIAZEM [Concomitant]
     Active Substance: DILTIAZEM
     Dates: start: 20221114
  20. FLUTICASONE PROPIONATE [Concomitant]
     Active Substance: FLUTICASONE PROPIONATE
     Dates: start: 20221222
  21. CETIRIZINE HYDROCHLORIDE [Concomitant]
     Active Substance: CETIRIZINE HYDROCHLORIDE
     Dates: start: 20221222
  22. SODIUM CHLORIDE [Concomitant]
     Active Substance: SODIUM CHLORIDE
     Dates: start: 20221228, end: 20221228

REACTIONS (2)
  - Vestibular disorder [Recovered/Resolved]
  - Mastoiditis [Recovered/Resolved]

NARRATIVE: CASE EVENT DATE: 20230109
